FAERS Safety Report 11839471 (Version 1)
Quarter: 2015Q4

REPORT INFORMATION
  Report Type: Spontaneous
  Country: DE (occurrence: DE)
  Receive Date: 20151216
  Receipt Date: 20151216
  Transmission Date: 20160305
  Serious: Yes (Disabling, Other)
  Sender: FDA-Public Use
  Company Number: DE-DRREDDYS-GER/GER/15/0054635

PATIENT
  Age: 10 Month
  Sex: Male
  Weight: 10 kg

DRUGS (2)
  1. MIRTAZAPINE. [Suspect]
     Active Substance: MIRTAZAPINE
     Indication: PRODUCT USED FOR UNKNOWN INDICATION
     Route: 064
     Dates: start: 201402
  2. QUETIAPINE [Suspect]
     Active Substance: QUETIAPINE
     Indication: PRODUCT USED FOR UNKNOWN INDICATION
     Route: 064
     Dates: start: 201402

REACTIONS (3)
  - Hemiparesis [Recovered/Resolved with Sequelae]
  - Gliosis [Unknown]
  - Foetal exposure during pregnancy [Unknown]

NARRATIVE: CASE EVENT DATE: 2015
